FAERS Safety Report 9096822 (Version 1)
Quarter: 2013Q1

REPORT INFORMATION
  Report Type: Spontaneous
  Country: US (occurrence: US)
  Receive Date: 20130211
  Receipt Date: 20130211
  Transmission Date: 20140127
  Serious: No
  Sender: FDA-Public Use
  Company Number: US-BAYER-2013-017595

PATIENT
  Age: 25 Year
  Sex: Female

DRUGS (3)
  1. MIRENA [Suspect]
     Indication: CONTRACEPTION
     Dosage: 20 MCG/24HR, CONT
     Route: 015
     Dates: start: 20130128, end: 20130207
  2. MIRENA [Suspect]
     Indication: MENORRHAGIA
  3. MIRENA [Suspect]
     Indication: DYSMENORRHOEA

REACTIONS (1)
  - Device expulsion [None]
